FAERS Safety Report 21919151 (Version 1)
Quarter: 2023Q1

REPORT INFORMATION
  Report Type: Spontaneous
  Country: US (occurrence: None)
  Receive Date: 20230126
  Receipt Date: 20230126
  Transmission Date: 20230417
  Serious: No
  Sender: FDA-Public Use
  Company Number: None

PATIENT
  Age: 67 Year
  Sex: Female
  Weight: 100.8 kg

DRUGS (19)
  1. PAXLOVID [Suspect]
     Active Substance: NIRMATRELVIR\RITONAVIR
     Indication: COVID-19 treatment
     Dosage: OTHER QUANTITY : 20 TABLET(S);?FREQUENCY : EVERY 12 HOURS;?
     Route: 048
     Dates: start: 20230121, end: 20230126
  2. DULOXETINE [Concomitant]
     Active Substance: DULOXETINE
  3. CELEBREX [Concomitant]
     Active Substance: CELECOXIB
  4. COREG [Concomitant]
     Active Substance: CARVEDILOL
  5. NORVASC [Concomitant]
     Active Substance: AMLODIPINE BESYLATE
  6. PILOCARPINE [Concomitant]
     Active Substance: PILOCARPINE
  7. SIMVASTATIN [Concomitant]
     Active Substance: SIMVASTATIN
  8. PROTONIX [Concomitant]
     Active Substance: PANTOPRAZOLE SODIUM
  9. MONTELUKAST [Concomitant]
     Active Substance: MONTELUKAST SODIUM
  10. TRAMADOL [Concomitant]
     Active Substance: TRAMADOL
  11. CYCLOBENZAPRINE [Concomitant]
     Active Substance: CYCLOBENZAPRINE
  12. ABILIFY [Concomitant]
     Active Substance: ARIPIPRAZOLE
  13. TYLENOL [Concomitant]
     Active Substance: ACETAMINOPHEN
  14. IBUPROFEN [Concomitant]
     Active Substance: IBUPROFEN
  15. PHENYLEPHRINE [Concomitant]
     Active Substance: PHENYLEPHRINE HYDROCHLORIDE
  16. Guaifenisin/dextromethorphan [Concomitant]
  17. CALTRATE [Concomitant]
     Active Substance: CALCIUM CARBONATE
  18. VITAMINS [Concomitant]
     Active Substance: VITAMINS
  19. XYZAL [Concomitant]
     Active Substance: LEVOCETIRIZINE DIHYDROCHLORIDE

REACTIONS (2)
  - Dysgeusia [None]
  - Urine output increased [None]

NARRATIVE: CASE EVENT DATE: 20230121
